FAERS Safety Report 26123520 (Version 1)
Quarter: 2025Q4

REPORT INFORMATION
  Report Type: Report from Study
  Country: JP (occurrence: JP)
  Receive Date: 20251204
  Receipt Date: 20251204
  Transmission Date: 20260118
  Serious: Yes (Other)
  Sender: TAKEDA
  Company Number: JP-TAKEDA-2025TJP012330

PATIENT
  Age: 10 Year
  Sex: Female
  Weight: 32.4 kg

DRUGS (24)
  1. PROTEIN C [Suspect]
     Active Substance: PROTEIN C
     Indication: Protein C deficiency
     Dosage: 2000 INTERNATIONAL UNIT
  2. PROTEIN C [Suspect]
     Active Substance: PROTEIN C
     Dosage: 2000 INTERNATIONAL UNIT
  3. PROTEIN C [Suspect]
     Active Substance: PROTEIN C
     Dosage: 2000 INTERNATIONAL UNIT
  4. PROTEIN C [Suspect]
     Active Substance: PROTEIN C
     Dosage: 2000 INTERNATIONAL UNIT
  5. PROTEIN C [Suspect]
     Active Substance: PROTEIN C
     Dosage: 2000 INTERNATIONAL UNIT
  6. PROTEIN C [Suspect]
     Active Substance: PROTEIN C
     Dosage: 2000 INTERNATIONAL UNIT
  7. PROTEIN C [Suspect]
     Active Substance: PROTEIN C
     Dosage: 2000 INTERNATIONAL UNIT
  8. PROTEIN C [Suspect]
     Active Substance: PROTEIN C
     Dosage: 2000 INTERNATIONAL UNIT
  9. PROTEIN C [Suspect]
     Active Substance: PROTEIN C
     Dosage: 2000 INTERNATIONAL UNIT
  10. PROTEIN C [Suspect]
     Active Substance: PROTEIN C
     Dosage: 2000 INTERNATIONAL UNIT
  11. PROTEIN C [Suspect]
     Active Substance: PROTEIN C
     Dosage: 2000 INTERNATIONAL UNIT
  12. HUMAN RED BLOOD CELL [Concomitant]
     Active Substance: HUMAN RED BLOOD CELL
     Indication: Transfusion
     Dosage: 840 MILLILITER
     Dates: start: 20240919, end: 20240919
  13. PLATELETS [Concomitant]
     Active Substance: HUMAN PLATELET, ALLOGENIC
     Indication: Transfusion
     Dosage: UNK
     Dates: start: 20240919, end: 20240919
  14. FRESH FROZEN PLASMA [Concomitant]
     Active Substance: HUMAN PLASMA
     Indication: Transfusion
     Dosage: 300 MILLILITER
     Dates: start: 20240919, end: 20240919
  15. VENOGLOBULIN IH [Concomitant]
     Active Substance: HUMAN IMMUNOGLOBULIN G
     Dosage: UNK
  16. AMINO ACIDS, SOURCE UNSPECIFIED [Concomitant]
     Active Substance: AMINO ACIDS, SOURCE UNSPECIFIED
     Dosage: UNK
  17. CLAFORAN [Concomitant]
     Active Substance: CEFOTAXIME SODIUM
     Dosage: UNK
  18. AMPICILLIN [Concomitant]
     Active Substance: AMPICILLIN
     Dosage: UNK
  19. CELLCEPT [Concomitant]
     Active Substance: MYCOPHENOLATE MOFETIL
     Dosage: UNK
  20. PROGRAF [Concomitant]
     Active Substance: TACROLIMUS
     Dosage: UNK
  21. URSO [Concomitant]
     Active Substance: URSODIOL
     Dosage: UNK
  22. LEVOTHYROXINE SODIUM [Concomitant]
     Active Substance: LEVOTHYROXINE SODIUM
     Dosage: UNK
  23. BIO-THREE [Concomitant]
     Active Substance: HERBALS
     Dosage: UNK
  24. FENTANYL [Concomitant]
     Active Substance: FENTANYL
     Dosage: UNK

REACTIONS (3)
  - Pancreatitis acute [Recovered/Resolved]
  - Liver transplant rejection [Recovered/Resolved]
  - Bacterial infection [Recovered/Resolved]

NARRATIVE: CASE EVENT DATE: 20240921
